FAERS Safety Report 10984323 (Version 1)
Quarter: 2015Q2

REPORT INFORMATION
  Report Type: Spontaneous
  Country: GB (occurrence: GB)
  Receive Date: 20150403
  Receipt Date: 20150403
  Transmission Date: 20150821
  Serious: Yes (Other)
  Sender: FDA-Public Use
  Company Number: GB-ASTRAZENECA-2015SE29941

PATIENT

DRUGS (2)
  1. ZOLADEX [Suspect]
     Active Substance: GOSERELIN ACETATE
     Route: 058
  2. ZOLADEX [Suspect]
     Active Substance: GOSERELIN ACETATE
     Route: 058

REACTIONS (3)
  - Prostate cancer [Unknown]
  - Implant site reaction [Unknown]
  - Adverse event [Unknown]

NARRATIVE: CASE EVENT DATE: 20150327
